FAERS Safety Report 7792978-3 (Version None)
Quarter: 2011Q4

REPORT INFORMATION
  Report Type: 
  Country: None (occurrence: None)
  Receive Date: 20111003
  Receipt Date: 20110919
  Transmission Date: 20120403
  Serious: Yes (Other)
  Sender: FDA-Public Use
  Company Number: PHFR2011IE04589

PATIENT
  Sex: Male

DRUGS (3)
  1. CLOZAPINE [Suspect]
     Dosage: 150 MG/DAY
  2. CLOZAPINE [Suspect]
     Indication: SCHIZOPHRENIA
     Route: 048
     Dates: start: 20110708
  3. CLOZAPINE [Suspect]
     Dosage: 225 MG
     Route: 048
     Dates: end: 20110826

REACTIONS (7)
  - PYREXIA [None]
  - SALIVARY HYPERSECRETION [None]
  - PNEUMONIA ASPIRATION [None]
  - SEPSIS [None]
  - DELIRIUM [None]
  - C-REACTIVE PROTEIN INCREASED [None]
  - NEUTROPHILIA [None]
